FAERS Safety Report 8577667 (Version 2)
Quarter: 2014Q1

REPORT INFORMATION
  Report Type: Spontaneous
  Country: US (occurrence: None)
  Receive Date: 20120323
  Receipt Date: 20140306
  Transmission Date: 20141002
  Serious: Yes (Hospitalization)
  Sender: FDA-Public Use
  Company Number: 163-21880-11021232

PATIENT
  Age: 72 Year
  Sex: Male
  Weight: 84.4 kg

DRUGS (21)
  1. REVLIMID [Suspect]
     Indication: PLASMA CELL MYELOMA
     Dosage: 25 MG, 1 IN 1 D, PO
     Route: 048
     Dates: start: 201012
  2. WARFARIN SODIUM [Concomitant]
  3. VITAMIN D (ERGOCALCIFEROL) [Concomitant]
  4. UROXATRAL [Concomitant]
  5. TOPROL XL [Concomitant]
  6. VITAMIN C [Concomitant]
  7. SYNTHROID [Concomitant]
  8. SIMVASTATIN [Concomitant]
  9. SAW PALMETTO (SERENOA REPENS) [Concomitant]
  10. NEXIUM (ESOMEPRAZOLE) [Concomitant]
  11. LOVENOX [Concomitant]
  12. FLAXSEED (LINSEED OIL) [Concomitant]
  13. FISH OIL (FISH OIL) [Concomitant]
  14. DEXAMETHASONE (DEXAMETHASONE) [Concomitant]
  15. AMIODARONE HCL (AMIODARONE HYDROCHLORIDE) ) [Concomitant]
  16. CALCIUM (CALCIUM) [Concomitant]
  17. PHOS-NAK (PHOS-NAK) (POWDER) [Concomitant]
  18. ZINC (ZINC) [Concomitant]
  19. MAGNESIUM (MAGNESIUM) [Concomitant]
  20. ARIXTRA (FONDAPARINUX SODIUM) [Concomitant]
  21. PREVACID (LANSOPRAZOLE) [Concomitant]

REACTIONS (6)
  - Thrombosis [None]
  - Oedema peripheral [None]
  - Lacrimation increased [None]
  - Burning sensation [None]
  - Paraesthesia [None]
  - Tremor [None]
